FAERS Safety Report 19718501 (Version 2)
Quarter: 2021Q3

REPORT INFORMATION
  Report Type: Spontaneous
  Country: US (occurrence: US)
  Receive Date: 20210818
  Receipt Date: 20210901
  Transmission Date: 20211014
  Serious: Yes (Other)
  Sender: FDA-Public Use
  Company Number: US-JNJFOC-20201004326

PATIENT
  Age: 76 Year
  Sex: Female
  Weight: 89.44 kg

DRUGS (1)
  1. LISTERINE TOTAL CARE ZERO ALCOHOL ANTICAVITY FRESH MINT [Suspect]
     Active Substance: SODIUM FLUORIDE
     Indication: DENTAL DISORDER PROPHYLAXIS
     Dosage: DOSE: NOT MUCH?PRODUCT LAST ADMINISTERED 3 MONTHS
     Route: 048

REACTIONS (4)
  - Tooth loss [Unknown]
  - Tooth fracture [Not Recovered/Not Resolved]
  - Application site pain [Not Recovered/Not Resolved]
  - Toothache [Not Recovered/Not Resolved]

NARRATIVE: CASE EVENT DATE: 2020
